FAERS Safety Report 4311590-1 (Version None)
Quarter: 2004Q1

REPORT INFORMATION
  Report Type: 
  Country: None (occurrence: None)
  Receive Date: 20040302
  Receipt Date: 20040114
  Transmission Date: 20041129
  Serious: No
  Sender: FDA-Public Use
  Company Number: 200325795BWH

PATIENT
  Age: 68 Year
  Sex: Male

DRUGS (9)
  1. LEVITRA [Suspect]
     Indication: ERECTILE DYSFUNCTION
     Dosage: 10 MG PRN ORAL
     Route: 048
     Dates: start: 20030915
  2. TESTOSTERONE [Concomitant]
  3. ANDROGEL [Concomitant]
  4. AVODART [Concomitant]
  5. CLONAZEPAM [Concomitant]
  6. SINGULAIR [Concomitant]
  7. FOSAMAX [Concomitant]
  8. ACETAMINOPHEN [Concomitant]
  9. VIAGRA [Concomitant]

REACTIONS (1)
  - ERECTILE DYSFUNCTION [None]
